FAERS Safety Report 20906811 (Version 3)
Quarter: 2023Q2

REPORT INFORMATION
  Report Type: Spontaneous
  Country: TR (occurrence: TR)
  Receive Date: 20220602
  Receipt Date: 20230609
  Transmission Date: 20230722
  Serious: Yes (Other)
  Sender: FDA-Public Use
  Company Number: TR-NOVARTISPH-NVSC2022TR125183

PATIENT
  Age: 42 Year
  Sex: Female
  Weight: 89 kg

DRUGS (10)
  1. ACETAMINOPHEN [Suspect]
     Active Substance: ACETAMINOPHEN
     Indication: Product used for unknown indication
     Dosage: 500 MG, QD (2W3D-2W5D)
     Route: 048
     Dates: start: 20201103, end: 20201105
  2. LEVOTHYROXINE SODIUM [Suspect]
     Active Substance: LEVOTHYROXINE SODIUM
     Indication: Hypothyroidism
     Dosage: 50 MCG/DAY (THROUGHOUT THE PREGNANCY)
     Route: 048
     Dates: start: 2019
  3. VITAMIN D3 [Suspect]
     Active Substance: CHOLECALCIFEROL
     Indication: Product used for unknown indication
     Dosage: 1500 IU, QD (3W2D-3W4D)
     Route: 048
     Dates: start: 20201109, end: 20201111
  4. FERROUS GLYCINE SULFATE [Suspect]
     Active Substance: FERROUS GLYCINE SULFATE
     Indication: Product used for unknown indication
     Dosage: 100 MG, QD (2W3D-3W3D)
     Route: 048
     Dates: start: 20201103, end: 20201110
  5. FOLIC ACID [Suspect]
     Active Substance: FOLIC ACID
     Indication: Product used for unknown indication
     Dosage: 0.5 MG, QD (500 MCG/DAY, 2W3D-3W3D)
     Route: 048
     Dates: start: 20201103, end: 20201110
  6. VITAMIN B12 [Suspect]
     Active Substance: CYANOCOBALAMIN
     Indication: Product used for unknown indication
     Dosage: 2.5 MCG/DAY (2W3D-3W3D)
     Route: 048
     Dates: start: 20201103, end: 20201110
  7. FAVIPIRAVIR [Suspect]
     Active Substance: FAVIPIRAVIR
     Indication: COVID-19
     Dosage: 2 X 1600 MG (WITHIN 24 H, LOADING DOSE, 2W3D- 3W1D)
     Route: 048
     Dates: start: 20201103, end: 20201108
  8. FAVIPIRAVIR [Suspect]
     Active Substance: FAVIPIRAVIR
     Dosage: 2 X 600 MG (4 DAYS, MAINTENANCE DOSE, 2W3D-3W1D)
     Route: 048
     Dates: start: 20201103, end: 20201108
  9. FAVIPIRAVIR [Suspect]
     Active Substance: FAVIPIRAVIR
     Dosage: 2 X 1600 MG (WITHIN 24 H, LOADING DOSE, 3W2D-3W6D)
     Route: 048
     Dates: start: 20201108, end: 20201113
  10. FAVIPIRAVIR [Suspect]
     Active Substance: FAVIPIRAVIR
     Dosage: 2 X 600 MG (4 DAYS, MAINTENANCE DOSE, 3W2D-3W6D)
     Route: 048
     Dates: start: 20201108, end: 20201113

REACTIONS (2)
  - Abortion spontaneous [Unknown]
  - Maternal exposure during pregnancy [Unknown]
